FAERS Safety Report 9891792 (Version 1)
Quarter: 2014Q1

REPORT INFORMATION
  Report Type: Spontaneous
  Country: FR (occurrence: FR)
  Receive Date: 20140212
  Receipt Date: 20140212
  Transmission Date: 20141002
  Serious: Yes (Life-Threatening, Hospitalization, Other)
  Sender: FDA-Public Use
  Company Number: FR-PFIZER INC-2014038731

PATIENT
  Age: 54 Year
  Sex: Female

DRUGS (2)
  1. ORELOX [Suspect]
     Indication: NECK PAIN
     Dosage: UNK
     Route: 048
     Dates: start: 20060702, end: 20060705
  2. NIFLURIL [Suspect]
     Indication: NECK PAIN
     Dosage: UNK
     Dates: start: 20060702, end: 20060705

REACTIONS (1)
  - Cellulitis [Recovered/Resolved]
